FAERS Safety Report 4692233-4 (Version None)
Quarter: 2005Q2

REPORT INFORMATION
  Report Type: 
  Country: None (occurrence: None)
  Receive Date: 20050614
  Receipt Date: 20050527
  Transmission Date: 20051028
  Serious: Yes (Other)
  Sender: FDA-Public Use
  Company Number: 2004BL009012

PATIENT
  Age: 62 Year
  Sex: Male
  Weight: 105 kg

DRUGS (5)
  1. FLUOCINOLONE ACETONIDE INTRAVITREAL IMPLANT (0.5 MG) (FLUOCONAZOLE ACE [Suspect]
     Indication: CHOROIDITIS
     Dosage: UNKNOWN; LEFT EYE
     Dates: start: 20021120
  2. ALPHAGAN [Concomitant]
  3. DIAMOX [Concomitant]
  4. XALATAN [Concomitant]
  5. LOPIDINE [Concomitant]

REACTIONS (3)
  - INTRAOCULAR PRESSURE INCREASED [None]
  - MACULAR HOLE [None]
  - VISUAL ACUITY REDUCED [None]
